FAERS Safety Report 8042641-9 (Version None)
Quarter: 2012Q1

REPORT INFORMATION
  Report Type: 
  Country: None (occurrence: None)
  Receive Date: 20120112
  Receipt Date: 20120102
  Transmission Date: 20120608
  Serious: Yes (Hospitalization)
  Sender: FDA-Public Use
  Company Number: US-UCBSA-048554

PATIENT
  Age: 36 Year
  Sex: Female

DRUGS (3)
  1. AVONEX [Concomitant]
     Dosage: LIQUID
     Route: 030
     Dates: start: 20101101
  2. AVONEX [Concomitant]
     Indication: MULTIPLE SCLEROSIS
     Route: 030
  3. KEPPRA [Suspect]
     Indication: CONVULSION
     Dates: start: 20111124

REACTIONS (1)
  - HYPERSENSITIVITY [None]
